FAERS Safety Report 4984797-8 (Version None)
Quarter: 2006Q2

REPORT INFORMATION
  Report Type: 
  Country: None (occurrence: None)
  Receive Date: 20060427
  Receipt Date: 20041119
  Transmission Date: 20061013
  Serious: Yes (Hospitalization, Other)
  Sender: FDA-Public Use
  Company Number: CA-SANOFI-SYNTHELABO-F01200403678

PATIENT
  Sex: Male

DRUGS (13)
  1. OXALIPLATIN [Suspect]
     Indication: COLORECTAL CANCER METASTATIC
     Route: 042
     Dates: start: 20040826, end: 20040826
  2. OXALIPLATIN [Suspect]
     Route: 042
     Dates: start: 20041209, end: 20041209
  3. CAPECITABINE [Suspect]
     Dosage: 1000 MG/M2 TWICE DAILY FOR 2 WEEKS, Q3W
     Route: 048
     Dates: start: 20040826
  4. CAPECITABINE [Suspect]
     Dosage: 1000 MG/M2 TWICE DAILY FOR 2 WEEKS, Q3W
     Route: 048
     Dates: end: 20041104
  5. BEVACIZUMAB OR PLACEBO [Suspect]
     Route: 042
     Dates: start: 20040826, end: 20040826
  6. BEVACIZUMAB OR PLACEBO [Suspect]
     Route: 042
     Dates: start: 20040916, end: 20040916
  7. PRAVACHOL [Concomitant]
     Dosage: UNK
     Route: 065
     Dates: start: 20010615
  8. COLACE [Concomitant]
     Dosage: UNK
     Route: 065
     Dates: start: 20040715, end: 20041124
  9. ASAPHEN [Concomitant]
     Dosage: UNK
     Route: 065
     Dates: start: 20010615
  10. RELAFEN [Concomitant]
     Dosage: UNK
     Route: 065
     Dates: start: 20040715
  11. SENNA [Concomitant]
     Dosage: UNK
     Route: 065
     Dates: start: 20040715
  12. PLAVIX [Concomitant]
     Dosage: UNK
     Route: 065
     Dates: start: 20040903
  13. IMODIUM [Concomitant]
     Dosage: UNK
     Route: 065

REACTIONS (3)
  - AMAUROSIS [None]
  - DIARRHOEA [None]
  - PNEUMONIA [None]
